FAERS Safety Report 9412741 (Version 3)
Quarter: 2013Q3

REPORT INFORMATION
  Report Type: Spontaneous
  Country: FR (occurrence: FR)
  Receive Date: 20130722
  Receipt Date: 20130920
  Transmission Date: 20140515
  Serious: Yes (Life-Threatening, Hospitalization, Disabling)
  Sender: FDA-Public Use
  Company Number: FR-JNJFOC-20130710011

PATIENT
  Age: 25 Year
  Sex: Female
  Weight: 55 kg

DRUGS (8)
  1. REMICADE [Suspect]
     Indication: COLITIS ULCERATIVE
     Route: 042
     Dates: start: 20130607
  2. REMICADE [Suspect]
     Indication: COLITIS ULCERATIVE
     Route: 042
     Dates: start: 20130621
  3. LUDEAL [Suspect]
     Indication: CONTRACEPTION
     Route: 042
     Dates: end: 20130622
  4. ROWASA [Suspect]
     Indication: COLITIS ULCERATIVE
     Route: 048
     Dates: start: 20130602, end: 20130622
  5. PREDNISONE [Suspect]
     Indication: COLITIS ULCERATIVE
     Route: 048
     Dates: start: 20130602, end: 20130622
  6. CALCIDOSE [Suspect]
     Indication: HYPOCALCAEMIA
     Dosage: 2 DF/DAY
     Route: 048
     Dates: start: 20130531
  7. CACIT D3 [Suspect]
     Indication: VITAMIN SUPPLEMENTATION
     Route: 048
     Dates: start: 20130602, end: 20130622
  8. INEXIUM [Suspect]
     Indication: GASTROOESOPHAGEAL REFLUX DISEASE
     Route: 048
     Dates: start: 20130602, end: 20130622

REACTIONS (4)
  - Coma [Unknown]
  - Cerebral venous thrombosis [Not Recovered/Not Resolved]
  - Haemorrhagic cerebral infarction [Not Recovered/Not Resolved]
  - Colitis [Unknown]
